FAERS Safety Report 7398231-4 (Version None)
Quarter: 2011Q2

REPORT INFORMATION
  Report Type: 
  Country: None (occurrence: None)
  Receive Date: 20110406
  Receipt Date: 20110404
  Transmission Date: 20111010
  Serious: Yes (Death)
  Sender: FDA-Public Use
  Company Number: US-AMGEN-USASP2011018035

PATIENT
  Sex: Female
  Weight: 81.1 kg

DRUGS (1)
  1. NPLATE [Suspect]
     Indication: IDIOPATHIC THROMBOCYTOPENIC PURPURA
     Dosage: 6 A?G/KG, UNK
     Dates: start: 20090921, end: 20100827

REACTIONS (2)
  - CHRONIC HEPATITIS [None]
  - CERVIX CARCINOMA [None]
